FAERS Safety Report 5667657-9 (Version None)
Quarter: 2008Q1

REPORT INFORMATION
  Report Type: 
  Country: None (occurrence: None)
  Receive Date: 20080315
  Receipt Date: 20080129
  Transmission Date: 20080703
  Serious: No
  Sender: FDA-Public Use
  Company Number: US-ABBOTT-08P-163-0435836-00

PATIENT
  Sex: Female
  Weight: 55.842 kg

DRUGS (5)
  1. HUMIRA [Suspect]
     Indication: RHEUMATOID ARTHRITIS
     Route: 058
  2. PREGABALIN [Concomitant]
     Indication: HYPOAESTHESIA
     Route: 048
  3. FOLIC ACID [Concomitant]
     Indication: LABORATORY TEST ABNORMAL
     Route: 048
  4. B-KOMPLEX [Concomitant]
     Indication: LABORATORY TEST ABNORMAL
     Route: 048
  5. CYCLOBENZAPRINE HCL [Concomitant]
     Indication: JAW DISORDER
     Route: 048

REACTIONS (5)
  - INJECTION SITE ERYTHEMA [None]
  - INJECTION SITE PRURITUS [None]
  - INJECTION SITE REACTION [None]
  - INJECTION SITE SWELLING [None]
  - INJECTION SITE WARMTH [None]
